FAERS Safety Report 16346875 (Version 1)
Quarter: 2019Q2

REPORT INFORMATION
  Report Type: Spontaneous
  Country: US (occurrence: US)
  Receive Date: 20190523
  Receipt Date: 20190523
  Transmission Date: 20190711
  Serious: No
  Sender: FDA-Public Use
  Company Number: US-SCIEGEN PHARMACEUTICALS INC-2019SCISPO00177

PATIENT
  Age: 47 Year
  Sex: Female
  Weight: 104.33 kg

DRUGS (5)
  1. OXYCODONE ACETAMLNOPHEN [Concomitant]
  2. METFORMIN [Concomitant]
     Active Substance: METFORMIN HYDROCHLORIDE
  3. CYCLOBENZAPRINE. [Concomitant]
     Active Substance: CYCLOBENZAPRINE
  4. SPIRONOLACTONE. [Concomitant]
     Active Substance: SPIRONOLACTONE
  5. GABAPENTIN CAPSULES [Suspect]
     Active Substance: GABAPENTIN

REACTIONS (3)
  - Dizziness [Unknown]
  - Drug ineffective for unapproved indication [Not Recovered/Not Resolved]
  - Gait inability [Unknown]

NARRATIVE: CASE EVENT DATE: 201902
